FAERS Safety Report 13246208 (Version 1)
Quarter: 2017Q1

REPORT INFORMATION
  Report Type: Report from Study
  Country: US (occurrence: US)
  Receive Date: 20170217
  Receipt Date: 20170217
  Transmission Date: 20170428
  Serious: Yes (Hospitalization, Other)
  Sender: FDA-Public Use
  Company Number: US-BRISTOL-MYERS SQUIBB COMPANY-BMS-2017-011767

PATIENT
  Age: 49 Year
  Sex: Male
  Weight: 101.6 kg

DRUGS (1)
  1. ELOTUZUMAB. [Suspect]
     Active Substance: ELOTUZUMAB
     Indication: PLASMA CELL MYELOMA
     Dosage: 20 MG/KG, QCYCLE
     Route: 042
     Dates: start: 20160726

REACTIONS (1)
  - Delayed engraftment [Recovered/Resolved]

NARRATIVE: CASE EVENT DATE: 20160801
